FAERS Safety Report 8904455 (Version 2)
Quarter: 2013Q1

REPORT INFORMATION
  Report Type: Spontaneous
  Country: US (occurrence: US)
  Receive Date: 20121110
  Receipt Date: 20130110
  Transmission Date: 20140127
  Serious: Yes (Hospitalization)
  Sender: FDA-Public Use
  Company Number: US-MERCK-1211USA002457

PATIENT
  Age: 51 Year
  Sex: Male

DRUGS (5)
  1. PEGINTRON [Suspect]
     Indication: HEPATITIS C
     Dosage: 150 MICROGRAM, QW
     Route: 058
     Dates: start: 20111205
  2. RIBAVIRIN [Suspect]
     Route: 048
  3. INCIVEK [Suspect]
  4. VICODIN [Concomitant]
  5. VALIUM [Concomitant]

REACTIONS (3)
  - Influenza like illness [Recovering/Resolving]
  - Nausea [Recovering/Resolving]
  - Device malfunction [Unknown]
